FAERS Safety Report 5488187-3 (Version None)
Quarter: 2007Q4

REPORT INFORMATION
  Report Type: 
  Country: None (occurrence: None)
  Receive Date: 20071017
  Receipt Date: 20071008
  Transmission Date: 20080405
  Serious: Yes (Hospitalization)
  Sender: FDA-Public Use
  Company Number: US-ELI_LILLY_AND_COMPANY-US200707005325

PATIENT
  Sex: Female
  Weight: 165.53 kg

DRUGS (6)
  1. OLANZAPINE [Suspect]
     Indication: BIPOLAR DISORDER
     Dosage: 10 MG, UNK
     Dates: start: 20010913, end: 20021213
  2. OLANZAPINE [Suspect]
     Dosage: 5 MG, UNK
     Dates: start: 20030301, end: 20021213
  3. ARIPIPRAZOLE [Concomitant]
     Dates: start: 20030806
  4. RISPERIDONE [Concomitant]
     Dates: start: 20030611
  5. LITHIUM [Concomitant]
     Dates: start: 19930101
  6. PAROXETINE [Concomitant]
     Dates: start: 20030301, end: 20030706

REACTIONS (4)
  - CHOLECYSTECTOMY [None]
  - METABOLIC DISORDER [None]
  - TYPE 2 DIABETES MELLITUS [None]
  - WEIGHT INCREASED [None]
